FAERS Safety Report 7989776-4 (Version None)
Quarter: 2011Q4

REPORT INFORMATION
  Report Type: 
  Country: None (occurrence: None)
  Receive Date: 20111219
  Receipt Date: 20110111
  Transmission Date: 20120403
  Serious: No
  Sender: FDA-Public Use
  Company Number: US-ASTRAZENECA-2011SE00579

PATIENT
  Sex: Female

DRUGS (3)
  1. CRESTOR [Suspect]
     Indication: HYPERCHOLESTEROLAEMIA
     Route: 048
     Dates: start: 20100801, end: 20110104
  2. CRESTOR [Suspect]
     Route: 048
     Dates: start: 20110105
  3. NSAIDS [Concomitant]

REACTIONS (4)
  - BLOOD CREATINE PHOSPHOKINASE INCREASED [None]
  - LIVER FUNCTION TEST ABNORMAL [None]
  - BLOOD CHOLESTEROL ABNORMAL [None]
  - LIMB DISCOMFORT [None]
